FAERS Safety Report 25954642 (Version 2)
Quarter: 2025Q4

REPORT INFORMATION
  Report Type: Spontaneous
  Country: US (occurrence: US)
  Receive Date: 20251024
  Receipt Date: 20251106
  Transmission Date: 20260117
  Serious: No
  Sender: AXSOME THERAPEUTICS
  Company Number: US-AXS-AXS202510-001767

PATIENT
  Age: 35 Year
  Sex: Female
  Weight: 68.03 kg

DRUGS (1)
  1. SYMBRAVO [Suspect]
     Active Substance: MELOXICAM\RIZATRIPTAN BENZOATE
     Indication: Migraine
     Dosage: ONLY 1 TABLET/ONE DOSE WAS TAKEN
     Route: 065
     Dates: start: 20251001, end: 20251001

REACTIONS (5)
  - Abdominal pain upper [Recovered/Resolved]
  - Paraesthesia [Recovered/Resolved]
  - Headache [Recovered/Resolved]
  - Dizziness [Recovered/Resolved]
  - Nausea [Recovered/Resolved]

NARRATIVE: CASE EVENT DATE: 20251001
